FAERS Safety Report 19120101 (Version 1)
Quarter: 2021Q2

REPORT INFORMATION
  Report Type: Spontaneous
  Country: US (occurrence: US)
  Receive Date: 20210412
  Receipt Date: 20210412
  Transmission Date: 20210717
  Serious: Yes (Hospitalization, Other)
  Sender: FDA-Public Use
  Company Number: US-DRREDDYS-USA/USA/21/0133994

PATIENT
  Age: 33 Year
  Sex: Female

DRUGS (1)
  1. TACROLIMUS. [Suspect]
     Active Substance: TACROLIMUS
     Indication: IMMUNOSUPPRESSANT DRUG THERAPY

REACTIONS (5)
  - Optic neuropathy [Not Recovered/Not Resolved]
  - Cellulitis [Recovering/Resolving]
  - Toxicity to various agents [Not Recovered/Not Resolved]
  - Dyschromatopsia [Not Recovered/Not Resolved]
  - Acute kidney injury [Recovering/Resolving]
